FAERS Safety Report 5170261-2 (Version None)
Quarter: 2006Q4

REPORT INFORMATION
  Report Type: 
  Country: None (occurrence: None)
  Receive Date: 20061204
  Receipt Date: 20061127
  Transmission Date: 20070319
  Serious: Yes (Other)
  Sender: FDA-Public Use
  Company Number: GXKR2006GB07548

PATIENT
  Age: 67 Year
  Sex: Female

DRUGS (7)
  1. WARFARIN SODIUM [Suspect]
     Dosage: 6 MG,
  2. ANASTROZOLE [Suspect]
     Indication: BREAST CANCER
     Dosage: 1 MG, ORAL
     Route: 048
     Dates: start: 20061019
  3. ATENOLOL [Concomitant]
  4. BENDROFLUMETHIAZIDE [Concomitant]
  5. NIFEDIPINE [Concomitant]
  6. RAMIPRIL [Concomitant]
  7. SIMVASTATIN [Concomitant]

REACTIONS (2)
  - DRUG INTERACTION [None]
  - INTERNATIONAL NORMALISED RATIO INCREASED [None]
